FAERS Safety Report 6565372-0 (Version None)
Quarter: 2010Q1

REPORT INFORMATION
  Report Type: 
  Country: None (occurrence: None)
  Receive Date: 20100201
  Receipt Date: 20100122
  Transmission Date: 20100710
  Serious: Yes (Congenital Anomaly)
  Sender: FDA-Public Use
  Company Number: GXKR2010GB01115

PATIENT

DRUGS (2)
  1. LEVETIRACETAM [Suspect]
     Dosage: MATERNAL DOSE: 2000 MG
     Route: 064
  2. TOPIRAMATE [Suspect]
     Dosage: MATERNAL DOSE: 150 MG
     Route: 064

REACTIONS (3)
  - DIGEORGE'S SYNDROME [None]
  - DRUG EXPOSURE DURING PREGNANCY [None]
  - PARATHYROID DISORDER [None]
